FAERS Safety Report 6675588-0 (Version None)
Quarter: 2010Q2

REPORT INFORMATION
  Report Type: 
  Country: None (occurrence: None)
  Receive Date: 20100409
  Receipt Date: 20100330
  Transmission Date: 20101027
  Serious: Yes (Hospitalization)
  Sender: FDA-Public Use
  Company Number: PHEH2010US02919

PATIENT
  Sex: Female
  Weight: 45.351 kg

DRUGS (21)
  1. RECLAST [Suspect]
     Indication: OSTEOPOROSIS
     Dosage: UNK
     Route: 042
     Dates: start: 20090808
  2. HYDROXYCHLOROQUINE SULFATE [Concomitant]
     Dosage: 200 MG, QD
  3. SYNTHROID [Concomitant]
     Dosage: 0.05 MG, QD
  4. MEDROL [Concomitant]
     Dosage: 4 MG, QD
  5. LOPRESSOR [Concomitant]
     Dosage: 25 MG, BID
  6. PRILOSEC [Concomitant]
     Dosage: 20 MG, QD
     Route: 048
  7. ALPRAZOLAM [Concomitant]
     Dosage: 0.5 MG, QID
  8. NORVASC [Concomitant]
     Dosage: 10 MG, QD
     Route: 048
  9. ASPIRIN [Concomitant]
     Dosage: 81 MG, QD
     Route: 048
  10. ADVAIR DISKUS 100/50 [Concomitant]
     Dosage: 100/500 MCG 1-2 PUFF BID
     Route: 048
  11. NEURONTIN [Concomitant]
     Indication: HEADACHE
     Dosage: 700 MG, TID
     Route: 048
  12. COUMADIN [Concomitant]
     Dosage: 7MG MWF, 6 MG REST OF THE DAYS OF THE WEEK
  13. GAMUNEX [Concomitant]
     Indication: IMMUNE SYSTEM DISORDER
     Dosage: MONTHLY
  14. CALCIUM WITH VITAMIN D [Concomitant]
     Dosage: 600 MG, UNK
  15. VITAMINS [Concomitant]
  16. TOPROL-XL [Concomitant]
     Dosage: 25 MG, 1 1/2 BID
     Route: 048
  17. LEVOXYL [Concomitant]
     Dosage: 0.05 MG, QD
     Route: 048
  18. PLAQUENIL [Concomitant]
     Dosage: 200 MG, QD
     Route: 048
  19. MAXZIDE [Concomitant]
     Dosage: 37.5 MG, QD
     Route: 048
  20. MUCOMYST [Concomitant]
  21. MOBIC [Concomitant]
     Dosage: 15 MG, QD
     Route: 048

REACTIONS (5)
  - DYSKINESIA OESOPHAGEAL [None]
  - DYSPHAGIA [None]
  - MIGRAINE [None]
  - OESOPHAGEAL DILATION PROCEDURE [None]
  - WEIGHT DECREASED [None]
